FAERS Safety Report 5497361-1 (Version None)
Quarter: 2007Q4

REPORT INFORMATION
  Report Type: 
  Country: None (occurrence: None)
  Receive Date: 20071025
  Receipt Date: 20071017
  Transmission Date: 20080405
  Serious: Yes (Other)
  Sender: FDA-Public Use
  Company Number: PHNU2007DE02977

PATIENT
  Sex: Female
  Weight: 135 kg

DRUGS (1)
  1. GLEEVEC [Suspect]
     Indication: CHRONIC MYELOID LEUKAEMIA
     Dosage: 400 MG, QD
     Route: 048
     Dates: start: 20070201

REACTIONS (5)
  - DERMATITIS [None]
  - EXCESSIVE GRANULATION TISSUE [None]
  - SKIN ATROPHY [None]
  - SKIN EROSION [None]
  - SKIN ULCER [None]
